FAERS Safety Report 18704527 (Version 2)
Quarter: 2021Q1

REPORT INFORMATION
  Report Type: Spontaneous
  Country: FR (occurrence: FR)
  Receive Date: 20210106
  Receipt Date: 20210205
  Transmission Date: 20210419
  Serious: Yes (Other)
  Sender: FDA-Public Use
  Company Number: FR-TEVA-2020-FR-1865322

PATIENT
  Age: 39 Year
  Sex: Male

DRUGS (1)
  1. BUPRENORPHINE. [Suspect]
     Active Substance: BUPRENORPHINE
     Indication: DRUG ABUSE
     Dosage: ORAL DRUG USED THROUGH IV, AT PRESENTATION HE HADBEEN RECEIVING WEANINGDOSES OF IV DRUGS FOR 3 YEARS
     Route: 042

REACTIONS (8)
  - Venous thrombosis [Unknown]
  - Skin abrasion [Unknown]
  - Drug dependence [Unknown]
  - Drug abuse [Unknown]
  - Dermo-hypodermitis [Unknown]
  - Scar [Unknown]
  - Brachial artery entrapment syndrome [Unknown]
  - Subcutaneous abscess [Unknown]
